FAERS Safety Report 18339276 (Version 3)
Quarter: 2020Q4

REPORT INFORMATION
  Report Type: Spontaneous
  Country: US (occurrence: US)
  Receive Date: 20201002
  Receipt Date: 20201215
  Transmission Date: 20210113
  Serious: No
  Sender: FDA-Public Use
  Company Number: US-PFIZER INC-2020379914

PATIENT
  Age: 62 Year
  Sex: Female

DRUGS (4)
  1. XELJANZ XR [Suspect]
     Active Substance: TOFACITINIB CITRATE
     Dosage: 11 MG
     Dates: start: 20200930
  2. METHOTREXATE. [Concomitant]
     Active Substance: METHOTREXATE
     Dosage: UNK
  3. PREDNISONE. [Concomitant]
     Active Substance: PREDNISONE
     Dosage: UNK
  4. XELJANZ XR [Suspect]
     Active Substance: TOFACITINIB CITRATE
     Dosage: UNK
     Dates: start: 20200927, end: 202009

REACTIONS (6)
  - Pruritus [Unknown]
  - Hot flush [Unknown]
  - Visual impairment [Unknown]
  - Skin disorder [Unknown]
  - Dry eye [Unknown]
  - Paraesthesia [Unknown]

NARRATIVE: CASE EVENT DATE: 2020
